FAERS Safety Report 8270892-7 (Version None)
Quarter: 2012Q2

REPORT INFORMATION
  Report Type: 
  Country: None (occurrence: None)
  Receive Date: 20120410
  Receipt Date: 20120410
  Transmission Date: 20120825
  Serious: Yes (Disabling)
  Sender: FDA-Public Use
  Company Number: None

PATIENT
  Age: 32 Year
  Sex: Female
  Weight: 74.842 kg

DRUGS (1)
  1. MIRENA [Suspect]

REACTIONS (2)
  - MEDICAL DEVICE COMPLICATION [None]
  - MEDICAL DEVICE PAIN [None]
